FAERS Safety Report 7002518-4 (Version None)
Quarter: 2010Q3

REPORT INFORMATION
  Report Type: 
  Country: None (occurrence: None)
  Receive Date: 20100920
  Receipt Date: 20100330
  Transmission Date: 20110219
  Serious: Yes (Other)
  Sender: FDA-Public Use
  Company Number: US-ASTRAZENECA-2007UW04107

PATIENT
  Age: 16897 Day
  Sex: Female
  Weight: 76.7 kg

DRUGS (19)
  1. SEROQUEL [Suspect]
     Indication: ANXIETY
     Dosage: 25-100 MG
     Route: 048
     Dates: start: 20030701, end: 20060201
  2. SEROQUEL [Suspect]
     Indication: DEPRESSION
     Dosage: 25-100 MG
     Route: 048
     Dates: start: 20030701, end: 20060201
  3. SEROQUEL [Suspect]
     Indication: INSOMNIA
     Dosage: 25-100 MG
     Route: 048
     Dates: start: 20030701, end: 20060201
  4. SEROQUEL [Suspect]
     Route: 048
     Dates: start: 20030731, end: 20051018
  5. SEROQUEL [Suspect]
     Route: 048
     Dates: start: 20030731, end: 20051018
  6. SEROQUEL [Suspect]
     Route: 048
     Dates: start: 20030731, end: 20051018
  7. SEROQUEL [Suspect]
     Route: 048
     Dates: start: 20030731
  8. SEROQUEL [Suspect]
     Route: 048
     Dates: start: 20030731
  9. SEROQUEL [Suspect]
     Route: 048
     Dates: start: 20030731
  10. BENZONATATE [Concomitant]
     Dates: start: 20030908
  11. MEPERIDINE HCL [Concomitant]
     Dates: start: 20030909
  12. CELEBREX [Concomitant]
     Dates: start: 20030909
  13. HYDROCHLOROTHIAZIDE [Concomitant]
     Dosage: 37.5-25
     Dates: start: 20030909
  14. LOVASTATIN [Concomitant]
     Dates: start: 20030920
  15. LORAZEPAM [Concomitant]
     Dates: start: 20030920
  16. CARISOPRODOL [Concomitant]
     Dates: start: 20030922
  17. LIPITOR [Concomitant]
     Dates: start: 20030928
  18. NIFEDIAC CC ER [Concomitant]
     Dates: start: 20030928
  19. ZONAFLEX [Concomitant]

REACTIONS (4)
  - BLOOD TRIGLYCERIDES INCREASED [None]
  - DIABETES MELLITUS [None]
  - DIABETES MELLITUS INADEQUATE CONTROL [None]
  - PANCREATITIS [None]
